FAERS Safety Report 7911122-2 (Version None)
Quarter: 2011Q4

REPORT INFORMATION
  Report Type: 
  Country: None (occurrence: None)
  Receive Date: 20111109
  Receipt Date: 20111031
  Transmission Date: 20120403
  Serious: Yes (Other)
  Sender: FDA-Public Use
  Company Number: AXC-2011-000440

PATIENT

DRUGS (3)
  1. URSODIOL [Suspect]
     Indication: AUTOIMMUNE HEPATITIS
  2. URSODIOL [Suspect]
     Indication: BILIARY CIRRHOSIS PRIMARY
  3. CORTICOSTEROIDS [Concomitant]

REACTIONS (1)
  - HEPATIC ENCEPHALOPATHY [None]
